FAERS Safety Report 11409004 (Version 1)
Quarter: 2015Q3

REPORT INFORMATION
  Report Type: Report from Study
  Country: US (occurrence: US)
  Receive Date: 20150824
  Receipt Date: 20150824
  Transmission Date: 20151125
  Serious: No
  Sender: FDA-Public Use
  Company Number: PHEH2015US011268

PATIENT
  Sex: Female
  Weight: 72.56 kg

DRUGS (1)
  1. GILENYA [Suspect]
     Active Substance: FINGOLIMOD HYDROCHLORIDE
     Indication: MULTIPLE SCLEROSIS
     Dosage: 0.5 MG, QD
     Route: 048
     Dates: start: 20141020

REACTIONS (6)
  - Brain scan abnormal [Not Recovered/Not Resolved]
  - Drug dose omission [Recovered/Resolved]
  - Body temperature increased [Unknown]
  - Optic neuritis [Unknown]
  - Vision blurred [Unknown]
  - Temperature intolerance [Not Recovered/Not Resolved]
